FAERS Safety Report 11176907 (Version 1)
Quarter: 2015Q2

REPORT INFORMATION
  Report Type: Spontaneous
  Country: US (occurrence: None)
  Receive Date: 20150609
  Receipt Date: 20150609
  Transmission Date: 20150821
  Serious: Yes (Hospitalization)
  Sender: FDA-Public Use
  Company Number: None

PATIENT
  Age: 57 Year
  Sex: Female
  Weight: 96 kg

DRUGS (16)
  1. CIPROFLOXACIN. [Concomitant]
     Active Substance: CIPROFLOXACIN
  2. CARVEDILOL. [Concomitant]
     Active Substance: CARVEDILOL
  3. OMEPRAZOLE. [Concomitant]
     Active Substance: OMEPRAZOLE
  4. JANUMET [Concomitant]
     Active Substance: METFORMIN HYDROCHLORIDE\SITAGLIPTIN PHOSPHATE
  5. CANAGLIFLOZIN [Concomitant]
     Active Substance: CANAGLIFLOZIN
  6. INVOKANA [Suspect]
     Active Substance: CANAGLIFLOZIN
     Route: 048
  7. AMIODARONE [Concomitant]
     Active Substance: AMIODARONE
  8. LISINOPRIL. [Concomitant]
     Active Substance: LISINOPRIL
  9. AMITRIPTYLINE [Concomitant]
     Active Substance: AMITRIPTYLINE
  10. GABAPENTIN. [Concomitant]
     Active Substance: GABAPENTIN
  11. INSULIN DETEMIRE [Concomitant]
  12. DULOXETINE [Concomitant]
     Active Substance: DULOXETINE
  13. INSULIN ASPART (NOVOLOG) [Concomitant]
  14. NITROSTAT [Concomitant]
     Active Substance: NITROGLYCERIN
  15. ASPIRIN EC [Concomitant]
     Active Substance: ASPIRIN
  16. PRAVASTATIN [Concomitant]
     Active Substance: PRAVASTATIN\PRAVASTATIN SODIUM

REACTIONS (1)
  - Diabetic ketoacidosis [None]

NARRATIVE: CASE EVENT DATE: 20150602
